FAERS Safety Report 17037768 (Version 3)
Quarter: 2020Q4

REPORT INFORMATION
  Report Type: Spontaneous
  Country: JP (occurrence: JP)
  Receive Date: 20191115
  Receipt Date: 20201023
  Transmission Date: 20210113
  Serious: Yes (Other)
  Sender: FDA-Public Use
  Company Number: JP-PFIZER INC-2019266163

PATIENT
  Age: 8 Decade
  Sex: Male

DRUGS (3)
  1. ERYTHROCIN [ERYTHROMYCIN ETHYLSUCCINATE] [Concomitant]
     Dosage: UNK, DAILY
     Route: 048
  2. VFEND [Suspect]
     Active Substance: VORICONAZOLE
     Indication: PNEUMONIA FUNGAL
     Dosage: UNK UNK, 2X/DAY (IN THE MORNING AND IN THE EVENING A DAY)
     Route: 048
     Dates: start: 20190502, end: 20200123
  3. CRAVIT [Concomitant]
     Active Substance: LEVOFLOXACIN
     Indication: PNEUMONIA
     Dosage: UNK UNK, MONTHLY
     Route: 048

REACTIONS (13)
  - Blepharospasm [Unknown]
  - Liver function test increased [Unknown]
  - Product prescribing error [Unknown]
  - Nausea [Unknown]
  - Vision blurred [Recovering/Resolving]
  - Insomnia [Unknown]
  - Productive cough [Unknown]
  - Hallucination, auditory [Unknown]
  - Drug ineffective [Unknown]
  - Hallucination, visual [Unknown]
  - Cataract [Unknown]
  - Photopsia [Unknown]
  - Oedema [Unknown]

NARRATIVE: CASE EVENT DATE: 2019
